FAERS Safety Report 9340129 (Version 1)
Quarter: 2013Q2

REPORT INFORMATION
  Report Type: Spontaneous
  Country: US (occurrence: None)
  Receive Date: 20130607
  Receipt Date: 20130607
  Transmission Date: 20140414
  Serious: Yes (Hospitalization)
  Sender: FDA-Public Use
  Company Number: None

PATIENT
  Age: 67 Year
  Sex: Male
  Weight: 79.5 kg

DRUGS (2)
  1. BUPROPION [Suspect]
     Indication: DEPRESSION
     Dates: start: 20081104, end: 20130506
  2. PAROXETINE [Suspect]
     Indication: DEPRESSION
     Dates: start: 20120424, end: 20130506

REACTIONS (8)
  - Serotonin syndrome [None]
  - Tremor [None]
  - Muscle rigidity [None]
  - Pyrexia [None]
  - Clonus [None]
  - Anxiety [None]
  - Restlessness [None]
  - Blood creatine phosphokinase increased [None]
